FAERS Safety Report 23198525 (Version 1)
Quarter: 2023Q4

REPORT INFORMATION
  Report Type: Spontaneous
  Country: CA (occurrence: CA)
  Receive Date: 20231117
  Receipt Date: 20231117
  Transmission Date: 20240110
  Serious: Yes (Other)
  Sender: FDA-Public Use
  Company Number: CA-JNJFOC-20231125089

PATIENT
  Age: 31 Year
  Sex: Female

DRUGS (4)
  1. ACETAMINOPHEN [Suspect]
     Active Substance: ACETAMINOPHEN
     Indication: Drug abuse
     Route: 065
  2. CODEINE PHOSPHATE [Suspect]
     Active Substance: CODEINE PHOSPHATE
     Indication: Drug abuse
     Route: 065
  3. DIMENHYDRINATE [Suspect]
     Active Substance: DIMENHYDRINATE
     Indication: Drug abuse
     Route: 065
  4. METHADONE [Suspect]
     Active Substance: METHADONE HYDROCHLORIDE
     Indication: Drug abuse
     Route: 065

REACTIONS (3)
  - Drug abuse [Unknown]
  - Live birth [Unknown]
  - Maternal exposure during pregnancy [Unknown]
